FAERS Safety Report 15715209 (Version 1)
Quarter: 2018Q4

REPORT INFORMATION
  Report Type: Spontaneous
  Country: US (occurrence: US)
  Receive Date: 20181212
  Receipt Date: 20181212
  Transmission Date: 20190205
  Serious: No
  Sender: FDA-Public Use
  Company Number: US-ENDO PHARMACEUTICALS INC-2018-019563

PATIENT
  Sex: Male
  Weight: 104.31 kg

DRUGS (3)
  1. TESTIM [Suspect]
     Active Substance: TESTOSTERONE
     Indication: BLOOD TESTOSTERONE DECREASED
     Dosage: APPLY TO CHEST ONCE DAILY (DOSE NOT SPECIFIED)
     Route: 062
     Dates: start: 2015, end: 201708
  2. TESTIM [Suspect]
     Active Substance: TESTOSTERONE
     Dosage: APPLY ONE TUBE (50 MG) TO THE CHEST EVERY OTHER DAY
     Route: 062
     Dates: start: 201709, end: 201802
  3. TESTIM [Suspect]
     Active Substance: TESTOSTERONE
     Dosage: APPLY ONE TUBE (50 MG) TO THE CHEST DAILY
     Route: 062
     Dates: start: 201802

REACTIONS (14)
  - Hyperhidrosis [Unknown]
  - Blood testosterone decreased [Unknown]
  - Abnormal behaviour [Unknown]
  - Mood swings [Unknown]
  - Weight increased [Unknown]
  - Product administered at inappropriate site [Not Recovered/Not Resolved]
  - Underdose [Recovered/Resolved]
  - Depression [Unknown]
  - Fatigue [Unknown]
  - Somnolence [Unknown]
  - Weight loss poor [Unknown]
  - Insomnia [Unknown]
  - Drug level fluctuating [Unknown]
  - Blood testosterone increased [Recovered/Resolved]

NARRATIVE: CASE EVENT DATE: 2015
